FAERS Safety Report 4660072-6 (Version None)
Quarter: 2005Q2

REPORT INFORMATION
  Report Type: 
  Country: None (occurrence: None)
  Receive Date: 20050512
  Receipt Date: 20050131
  Transmission Date: 20051028
  Serious: No
  Sender: FDA-Public Use
  Company Number: US-GLAXOSMITHKLINE-A0543085A

PATIENT
  Sex: Female

DRUGS (4)
  1. RELAFEN [Suspect]
     Indication: RHEUMATOID ARTHRITIS
     Route: 048
     Dates: start: 20050127
  2. PRAVACHOL [Concomitant]
  3. BLOOD PRESSURE MEDICATION [Concomitant]
  4. EXTRA STRENGTH TYLENOL [Concomitant]

REACTIONS (1)
  - INSOMNIA [None]
